FAERS Safety Report 4614898-5 (Version None)
Quarter: 2005Q1

REPORT INFORMATION
  Report Type: 
  Country: None (occurrence: None)
  Receive Date: 20050318
  Receipt Date: 20050318
  Transmission Date: 20050727
  Serious: Yes (Other)
  Sender: FDA-Public Use
  Company Number: None

PATIENT
  Age: 59 Year
  Sex: Male
  Weight: 81.5 kg

DRUGS (1)
  1. BEVACIZUMAB [Suspect]
     Indication: COLON CANCER STAGE IV
     Dosage: 400MG, INFUSE O, INTRAVEN
     Route: 042
     Dates: start: 20041007, end: 20041007

REACTIONS (2)
  - CHEST PAIN [None]
  - DYSPNOEA [None]
